FAERS Safety Report 9423371 (Version 2)
Quarter: 2013Q3

REPORT INFORMATION
  Report Type: Spontaneous
  Country: AU (occurrence: AU)
  Receive Date: 20130726
  Receipt Date: 20130730
  Transmission Date: 20140515
  Serious: Yes (Hospitalization)
  Sender: FDA-Public Use
  Company Number: AU-ABBOTT-13P-008-1122747-00

PATIENT
  Sex: Female

DRUGS (1)
  1. HUMIRA [Suspect]
     Indication: PSORIASIS
     Route: 058

REACTIONS (3)
  - Psoriasis [Unknown]
  - Device malfunction [Unknown]
  - Drug dose omission [Unknown]
